FAERS Safety Report 21193135 (Version 3)
Quarter: 2022Q3

REPORT INFORMATION
  Report Type: Spontaneous
  Country: US (occurrence: None)
  Receive Date: 20220810
  Receipt Date: 20220818
  Transmission Date: 20221026
  Serious: Yes (Other)
  Sender: FDA-Public Use
  Company Number: US-ROCHE-3155666

PATIENT
  Age: 20 Year
  Sex: Female

DRUGS (1)
  1. XOLAIR [Suspect]
     Active Substance: OMALIZUMAB
     Indication: Chronic spontaneous urticaria
     Dosage: SOLUTION FOR INJECTION
     Route: 058
     Dates: start: 20220728

REACTIONS (3)
  - Anaphylactic reaction [Unknown]
  - Syncope [Unknown]
  - Wheezing [Unknown]
